FAERS Safety Report 5963522-8 (Version None)
Quarter: 2008Q4

REPORT INFORMATION
  Report Type: 
  Country: None (occurrence: None)
  Receive Date: 20081124
  Receipt Date: 20081110
  Transmission Date: 20090506
  Serious: Yes (Other)
  Sender: FDA-Public Use
  Company Number: CA-GENENTECH-271172

PATIENT
  Age: 76 Year
  Sex: Female

DRUGS (1)
  1. AVASTIN [Suspect]
     Indication: MACULAR DEGENERATION
     Dosage: ^/100 MG^, UNK
     Route: 031
     Dates: start: 20071113

REACTIONS (1)
  - ENDOPHTHALMITIS [None]
